FAERS Safety Report 7012416-8 (Version None)
Quarter: 2010Q3

REPORT INFORMATION
  Report Type: 
  Country: None (occurrence: None)
  Receive Date: 20100924
  Receipt Date: 20100921
  Transmission Date: 20110219
  Serious: Yes (Death)
  Sender: FDA-Public Use
  Company Number: PHHY2010CL41858

PATIENT
  Age: 90 Year
  Sex: Male

DRUGS (3)
  1. GLEEVEC [Suspect]
     Indication: GASTROINTESTINAL STROMAL TUMOUR
     Dosage: 400 MG, DAILY
     Route: 048
     Dates: start: 20100201
  2. LOPERAMIDA [Concomitant]
  3. LORAZEPAM [Concomitant]

REACTIONS (4)
  - COUGH [None]
  - MALAISE [None]
  - PNEUMONIA [None]
  - RHINITIS [None]
